FAERS Safety Report 8144727-7 (Version None)
Quarter: 2012Q1

REPORT INFORMATION
  Report Type: 
  Country: None (occurrence: None)
  Receive Date: 20120217
  Receipt Date: 20120209
  Transmission Date: 20120608
  Serious: Yes (Hospitalization)
  Sender: FDA-Public Use
  Company Number: US-PFIZER INC-2012034925

PATIENT
  Age: 58 Year
  Sex: Female
  Weight: 75.8 kg

DRUGS (3)
  1. AXITINIB [Suspect]
     Indication: NEUROENDOCRINE TUMOUR
     Dosage: 5 MG, 2X/DAY
     Dates: start: 20120126, end: 20120206
  2. PLAVIX [Concomitant]
     Dosage: 75 MG, DAILY
  3. SANDOSTATIN LAR [Concomitant]
     Dosage: 30 MG, Q 28 DAYS

REACTIONS (4)
  - SYSTOLIC HYPERTENSION [None]
  - CEREBRAL HAEMATOMA [None]
  - NEUROLOGICAL SYMPTOM [None]
  - CONVULSION [None]
